FAERS Safety Report 22006627 (Version 1)
Quarter: 2023Q1

REPORT INFORMATION
  Report Type: Spontaneous
  Country: FR (occurrence: FR)
  Receive Date: 20230217
  Receipt Date: 20230217
  Transmission Date: 20230418
  Serious: Yes (Hospitalization)
  Sender: FDA-Public Use
  Company Number: None

PATIENT
  Age: 82 Year
  Sex: Male
  Weight: 80 kg

DRUGS (2)
  1. ROSUVASTATIN [Suspect]
     Active Substance: ROSUVASTATIN
     Indication: Dyslipidaemia
     Dosage: UNK (NON CONNUE) (1FP)
     Route: 048
     Dates: start: 20211216, end: 202210
  2. ATORVASTATIN CALCIUM [Suspect]
     Active Substance: ATORVASTATIN CALCIUM
     Indication: Dyslipidaemia
     Dosage: UNK (NON CONNUE) (1FP)
     Route: 048
     Dates: start: 202101, end: 202106

REACTIONS (1)
  - Autoimmune myositis [Recovering/Resolving]

NARRATIVE: CASE EVENT DATE: 20210101
